FAERS Safety Report 12535756 (Version 1)
Quarter: 2016Q3

REPORT INFORMATION
  Report Type: Spontaneous
  Country: US (occurrence: US)
  Receive Date: 20160707
  Receipt Date: 20160707
  Transmission Date: 20161109
  Serious: Yes (Other)
  Sender: FDA-Public Use
  Company Number: US-TEVA-673297USA

PATIENT
  Sex: Female

DRUGS (1)
  1. ZECUITY [Suspect]
     Active Substance: SUMATRIPTAN SUCCINATE
     Indication: MIGRAINE
     Route: 062

REACTIONS (9)
  - Application site irritation [Recovered/Resolved]
  - Application site dryness [Recovered/Resolved]
  - Product adhesion issue [Unknown]
  - Sunburn [Recovered/Resolved]
  - Application site warmth [Recovered/Resolved]
  - Product leakage [Unknown]
  - Application site exfoliation [Recovered/Resolved]
  - Drug effect incomplete [Unknown]
  - Application site erythema [Recovered/Resolved]
